FAERS Safety Report 14228305 (Version 2)
Quarter: 2017Q4

REPORT INFORMATION
  Report Type: Report from Study
  Country: None (occurrence: CO)
  Receive Date: 20171127
  Receipt Date: 20171215
  Transmission Date: 20180321
  Serious: Yes (Hospitalization)
  Sender: FDA-Public Use
  Company Number: CO-ABBVIE-17S-036-2174843-00

PATIENT
  Age: 73 Year
  Weight: 76 kg

DRUGS (1)
  1. VIEKIRA PAK [Suspect]
     Active Substance: DASABUVIR\OMBITASVIR\PARITAPREVIR\RITONAVIR
     Indication: HEPATITIS C
     Route: 048
     Dates: start: 20170803, end: 20171025

REACTIONS (1)
  - Full blood count abnormal [Not Recovered/Not Resolved]

NARRATIVE: CASE EVENT DATE: 20171123
